FAERS Safety Report 16589075 (Version 3)
Quarter: 2020Q1

REPORT INFORMATION
  Report Type: Report from Study
  Country: None (occurrence: JP)
  Receive Date: 20190718
  Receipt Date: 20200227
  Transmission Date: 20200409
  Serious: Yes (Hospitalization)
  Sender: FDA-Public Use
  Company Number: JP-ABBVIE-19S-087-2804123-00

PATIENT
  Age: 52 Year
  Sex: Male
  Weight: 53 kg

DRUGS (9)
  1. DUODOPA [Suspect]
     Active Substance: CARBIDOPA\LEVODOPA
     Dosage: MD: 5 ML?CD: 1.7 ML/HR ? 16 HRS?ED: 1 ML/UNIT ? 1 TIME
     Route: 050
     Dates: start: 20180605, end: 20180606
  2. DUODOPA [Suspect]
     Active Substance: CARBIDOPA\LEVODOPA
     Dosage: MD: 5 ML?CD: 1.8 ML/HR ? 16 HRS?ED: 1 ML/UNIT ? 1 TIME
     Route: 050
     Dates: start: 20180607, end: 20180926
  3. ROTIGOTINE [Concomitant]
     Active Substance: ROTIGOTINE
     Indication: PARKINSON^S DISEASE
     Route: 062
  4. CARBIDOPA HYDRATE AND LEVODOPA [Concomitant]
     Route: 048
     Dates: start: 20190418
  5. DUODOPA [Suspect]
     Active Substance: CARBIDOPA\LEVODOPA
     Indication: PARKINSON^S DISEASE
     Dosage: MD: 6 ML?CD: 1.7 ML/HR ? 16 HRS?ED: 1 ML/UNIT ? 1 TIME
     Route: 050
     Dates: start: 20180524, end: 20180529
  6. DUODOPA [Suspect]
     Active Substance: CARBIDOPA\LEVODOPA
     Dosage: MD: 6 ML?CD: 1.9 ML/HR ? 16 HRS?ED: 1 ML/UNIT ? 1 TIME
     Route: 050
     Dates: start: 20180530, end: 20180604
  7. DUODOPA [Suspect]
     Active Substance: CARBIDOPA\LEVODOPA
     Dosage: MD: 5 ML?CD: 2.1  ML/HR ? 16 HRS?ED: 1 ML/UNIT ? 1 TIME
     Route: 050
     Dates: start: 20181122
  8. CARBIDOPA HYDRATE AND LEVODOPA [Concomitant]
     Indication: PARKINSON^S DISEASE
     Route: 048
     Dates: start: 201704
  9. DUODOPA [Suspect]
     Active Substance: CARBIDOPA\LEVODOPA
     Dosage: MD: 5 ML?CD: 1.9 ML/HR ? 16 HRS?ED: 1 ML/UNIT ? 1 TIME
     Route: 050
     Dates: start: 20180927, end: 20181121

REACTIONS (1)
  - Myelitis [Recovered/Resolved]

NARRATIVE: CASE EVENT DATE: 20190527
